FAERS Safety Report 9770673 (Version 1)
Quarter: 2013Q4

REPORT INFORMATION
  Report Type: Spontaneous
  Country: FR (occurrence: FR)
  Receive Date: 20131218
  Receipt Date: 20131218
  Transmission Date: 20140711
  Serious: Yes (Other)
  Sender: FDA-Public Use
  Company Number: FR-GLAXOSMITHKLINE-B0936813A

PATIENT
  Age: 53 Year
  Sex: Male

DRUGS (2)
  1. CLAVENTIN [Suspect]
     Indication: PRODUCT USED FOR UNKNOWN INDICATION
     Route: 042
     Dates: start: 20131028, end: 20131028
  2. CUBICIN [Suspect]
     Indication: PRODUCT USED FOR UNKNOWN INDICATION
     Route: 042
     Dates: start: 20131028, end: 20131028

REACTIONS (1)
  - Injection site extravasation [Recovered/Resolved]
